FAERS Safety Report 17741385 (Version 1)
Quarter: 2020Q2

REPORT INFORMATION
  Report Type: Spontaneous
  Country: JP (occurrence: JP)
  Receive Date: 20200504
  Receipt Date: 20200504
  Transmission Date: 20200714
  Serious: Yes (Hospitalization, Other)
  Sender: FDA-Public Use
  Company Number: JP-PFIZER INC-2020085416

PATIENT
  Age: 40 Year
  Sex: Female

DRUGS (5)
  1. MEROPENEM. [Suspect]
     Active Substance: MEROPENEM
     Indication: PYELONEPHRITIS ACUTE
     Dosage: UNK
     Route: 041
  2. CEFAZOLIN [Suspect]
     Active Substance: CEFAZOLIN
     Indication: PYELONEPHRITIS ACUTE
     Dosage: UNK
  3. CEFTAZIDIME. [Suspect]
     Active Substance: CEFTAZIDIME
     Indication: PYELONEPHRITIS ACUTE
     Dosage: UNK
  4. CEFMETAZOLE [Suspect]
     Active Substance: CEFMETAZOLE
     Indication: PYELONEPHRITIS ACUTE
     Dosage: UNK
  5. AMPICILLIN [Suspect]
     Active Substance: AMPICILLIN
     Indication: PYELONEPHRITIS ACUTE
     Dosage: UNK

REACTIONS (2)
  - Escherichia infection [Not Recovered/Not Resolved]
  - Multiple-drug resistance [Not Recovered/Not Resolved]
